FAERS Safety Report 10717053 (Version 2)
Quarter: 2015Q1

REPORT INFORMATION
  Report Type: Spontaneous
  Country: US (occurrence: US)
  Receive Date: 20150116
  Receipt Date: 20150116
  Transmission Date: 20150721
  Serious: Yes (Other)
  Sender: FDA-Public Use
  Company Number: US-VIVUS-2013V1000872

PATIENT
  Age: 39 Year
  Sex: Female
  Weight: 88.98 kg

DRUGS (3)
  1. GENERIC YAZ [Concomitant]
     Indication: CONTRACEPTION
     Route: 048
     Dates: start: 201303
  2. QSYMIA [Suspect]
     Active Substance: PHENTERMINE HYDROCHLORIDE\TOPIRAMATE
     Indication: WEIGHT DECREASED
     Dates: start: 20131203, end: 20131211
  3. ARMOUR THYROID [Concomitant]
     Active Substance: THYROID, PORCINE\THYROID, UNSPECIFIED
     Indication: HYPOTHYROIDISM
     Route: 048
     Dates: start: 2011

REACTIONS (3)
  - Intraocular pressure increased [Unknown]
  - Blindness [Recovered/Resolved]
  - Vision blurred [Not Recovered/Not Resolved]

NARRATIVE: CASE EVENT DATE: 201312
